FAERS Safety Report 10267921 (Version 1)
Quarter: 2014Q2

REPORT INFORMATION
  Report Type: Spontaneous
  Country: US (occurrence: None)
  Receive Date: 20140626
  Receipt Date: 20140626
  Transmission Date: 20141212
  Serious: No
  Sender: FDA-Public Use
  Company Number: None

PATIENT
  Age: 65 Year
  Sex: Female
  Weight: 74.84 kg

DRUGS (3)
  1. EVISTA [Suspect]
     Indication: OSTEOPOROSIS PROPHYLAXIS
     Dosage: 1 PILL ONCE DAILY TAKEN BY MOUTH
     Route: 048
  2. EVISTA [Suspect]
     Indication: BREAST CANCER
     Dosage: 1 PILL ONCE DAILY TAKEN BY MOUTH
     Route: 048
  3. EVISTA [Suspect]
     Indication: NEOPLASM PROPHYLAXIS
     Dosage: 1 PILL ONCE DAILY TAKEN BY MOUTH
     Route: 048

REACTIONS (3)
  - Jaw disorder [None]
  - Gingival hypertrophy [None]
  - Bone disorder [None]
